APPROVED DRUG PRODUCT: ACUVUE THERAVISION WITH KETOTIFEN
Active Ingredient: KETOTIFEN FUMARATE
Strength: EQ 19MCG BASE
Dosage Form/Route: DRUG-ELUTING CONTACT LENS;OPHTHALMIC
Application: N022388 | Product #001
Applicant: JOHNSON AND JOHNSON VISION CARE INC
Approved: Feb 25, 2022 | RLD: Yes | RS: No | Type: DISCN

PATENTS:
Patent 9962376 | Expires: Jun 27, 2030
Patent 9474746 | Expires: Mar 27, 2028